FAERS Safety Report 10498712 (Version 1)
Quarter: 2014Q4

REPORT INFORMATION
  Report Type: Spontaneous
  Country: JP (occurrence: JP)
  Receive Date: 20141006
  Receipt Date: 20141006
  Transmission Date: 20150528
  Serious: Yes (Other)
  Sender: FDA-Public Use
  Company Number: JP-NAPPMUNDI-GBR-2014-0022331

PATIENT
  Age: 92 Year
  Sex: Male

DRUGS (2)
  1. NORSPAN [Suspect]
     Active Substance: BUPRENORPHINE
     Indication: BACK PAIN
  2. NORSPAN [Suspect]
     Active Substance: BUPRENORPHINE
     Indication: SCIATICA
     Dosage: 5 MG, Q1H
     Route: 062
     Dates: start: 20140827

REACTIONS (2)
  - Loss of consciousness [Unknown]
  - Cardiac failure [Recovered/Resolved]

NARRATIVE: CASE EVENT DATE: 20140827
